FAERS Safety Report 6913676-1 (Version None)
Quarter: 2010Q3

REPORT INFORMATION
  Report Type: 
  Country: None (occurrence: None)
  Receive Date: 20100806
  Receipt Date: 20100806
  Transmission Date: 20110219
  Serious: No
  Sender: FDA-Public Use
  Company Number: None

PATIENT
  Age: 47 Year
  Sex: Female
  Weight: 65.7716 kg

DRUGS (1)
  1. SAVELLA [Suspect]
     Indication: BACK PAIN
     Dosage: 12.5 MG DAY 1 - EVENING 12.5 - 2X DAY DAY 2-3 MORNING EVENING END OF JUNE/10 TO 2ND WEEK OF JULY/10
     Dates: start: 20100601, end: 20100701

REACTIONS (4)
  - DYSKINESIA [None]
  - IMPAIRED WORK ABILITY [None]
  - MUSCLE TWITCHING [None]
  - NERVOUSNESS [None]
